FAERS Safety Report 15804713 (Version 1)
Quarter: 2019Q1

REPORT INFORMATION
  Report Type: Spontaneous
  Country: US (occurrence: US)
  Receive Date: 20190109
  Receipt Date: 20190109
  Transmission Date: 20190417
  Serious: Yes (Life-Threatening)
  Sender: FDA-Public Use
  Company Number: US-BAXTER-2019BAX000065

PATIENT
  Age: 54 Year
  Sex: Male

DRUGS (4)
  1. NEXTERONE [Suspect]
     Active Substance: AMIODARONE HYDROCHLORIDE
     Indication: VENTRICULAR FIBRILLATION
     Route: 041
  2. MAGNESIUM [Suspect]
     Active Substance: MAGNESIUM
     Indication: VENTRICULAR FIBRILLATION
     Route: 041
  3. LIDOCAINE HYDROCHLORIDE AND 5% DEXTROSE INJECTION, USP [Suspect]
     Active Substance: LIDOCAINE HYDROCHLORIDE
     Indication: VENTRICULAR FIBRILLATION
     Route: 041
  4. ONDANSETRON [Concomitant]
     Active Substance: ONDANSETRON
     Indication: PRODUCT USED FOR UNKNOWN INDICATION
     Route: 065

REACTIONS (1)
  - Drug ineffective [Unknown]
